FAERS Safety Report 13247099 (Version 1)
Quarter: 2017Q1

REPORT INFORMATION
  Report Type: Spontaneous
  Country: US (occurrence: US)
  Receive Date: 20170217
  Receipt Date: 20170217
  Transmission Date: 20170428
  Serious: No
  Sender: FDA-Public Use
  Company Number: US-PERRIGO-16US017365

PATIENT
  Age: 84 Year
  Sex: Female
  Weight: 54.88 kg

DRUGS (3)
  1. LIPOFLAVONOID                      /00457001/ [Concomitant]
     Indication: TINNITUS
     Dosage: UNK
     Route: 065
  2. CALCIUM + VIT D [Concomitant]
     Active Substance: CALCIUM\VITAMIN D
     Indication: ARTHRITIS
     Dosage: UNK
     Route: 065
  3. CETIRIZINE HYDROCHLORIDE. [Suspect]
     Active Substance: CETIRIZINE HYDROCHLORIDE
     Indication: TINNITUS
     Dosage: 10 MG, QD
     Route: 048
     Dates: start: 20160616, end: 20160617

REACTIONS (8)
  - Off label use [Recovered/Resolved]
  - Muscle spasms [Recovered/Resolved]
  - Head discomfort [Recovered/Resolved]
  - Somnolence [Recovered/Resolved]
  - Dizziness [Recovered/Resolved]
  - Myalgia [Recovered/Resolved]
  - Visual impairment [Recovered/Resolved]
  - Drug administered to patient of inappropriate age [Recovered/Resolved]

NARRATIVE: CASE EVENT DATE: 20160616
